FAERS Safety Report 12476773 (Version 2)
Quarter: 2016Q2

REPORT INFORMATION
  Report Type: Spontaneous
  Country: DE (occurrence: DE)
  Receive Date: 20160617
  Receipt Date: 20160629
  Transmission Date: 20160815
  Serious: Yes (Death, Hospitalization, Other)
  Sender: FDA-Public Use
  Company Number: PHHY2016DE082446

PATIENT
  Age: 34 Year
  Sex: Male

DRUGS (1)
  1. COSENTYX [Suspect]
     Active Substance: SECUKINUMAB
     Indication: PUSTULAR PSORIASIS
     Dosage: 300 MG, QMO
     Route: 058
     Dates: start: 201506

REACTIONS (12)
  - Erythrodermic psoriasis [Unknown]
  - Dermatitis exfoliative [Unknown]
  - Acute hepatic failure [Unknown]
  - Lactic acidosis [Unknown]
  - Acute respiratory distress syndrome [Unknown]
  - Respiratory tract infection [Unknown]
  - Acute kidney injury [Unknown]
  - Systemic inflammatory response syndrome [Unknown]
  - Bladder disorder [Unknown]
  - Intestinal ischaemia [Fatal]
  - Sepsis [Unknown]
  - Oedema [Unknown]

NARRATIVE: CASE EVENT DATE: 20151229
